FAERS Safety Report 8132330 (Version 2)
Quarter: 2014Q3

REPORT INFORMATION
  Report Type: Spontaneous
  Country: US (occurrence: US)
  Receive Date: 20110913
  Receipt Date: 20140703
  Transmission Date: 20150326
  Serious: Yes (Hospitalization, Other)
  Sender: FDA-Public Use
  Company Number: US-AMGEN-USASP2011045612

PATIENT
  Age: 70 Year
  Sex: Male

DRUGS (2)
  1. ENBREL [Suspect]
     Active Substance: ETANERCEPT
     Dosage: UNK
     Route: 065
  2. ENBREL [Suspect]
     Active Substance: ETANERCEPT
     Indication: RHEUMATOID ARTHRITIS
     Dosage: 50 MG, QWK
     Route: 065
     Dates: start: 20050401

REACTIONS (12)
  - Arthralgia [Not Recovered/Not Resolved]
  - Hemiplegia [Recovered/Resolved]
  - Lacrimation increased [Not Recovered/Not Resolved]
  - Eye pain [Not Recovered/Not Resolved]
  - Pancreatitis [Recovered/Resolved]
  - Meningioma [Not Recovered/Not Resolved]
  - Pain [Recovered/Resolved]
  - Pneumonia [Recovered/Resolved]
  - Intervertebral disc disorder [Recovered/Resolved]
  - Fall [Recovered/Resolved]
  - Cerebrovascular accident [Recovered/Resolved]
  - Adhesion [Recovered/Resolved]

NARRATIVE: CASE EVENT DATE: 20110701
